FAERS Safety Report 25912550 (Version 1)
Quarter: 2025Q4

REPORT INFORMATION
  Report Type: Other
  Country: US (occurrence: US)
  Receive Date: 20251013
  Receipt Date: 20251013
  Transmission Date: 20260117
  Serious: No
  Sender: BIOLOGICAL E. LIMITED
  Company Number: US-BELUSA-2025BELREG0054

PATIENT

DRUGS (1)
  1. ENOXAPARIN SODIUM [Suspect]
     Active Substance: ENOXAPARIN SODIUM
     Indication: Product used for unknown indication
     Route: 065

REACTIONS (3)
  - No adverse event [Unknown]
  - Device deployment issue [Unknown]
  - Device breakage [Unknown]
